FAERS Safety Report 14294141 (Version 2)
Quarter: 2021Q2

REPORT INFORMATION
  Report Type: Spontaneous
  Country: US (occurrence: US)
  Receive Date: 20171217
  Receipt Date: 20210525
  Transmission Date: 20210716
  Serious: Yes (Disabling)
  Sender: FDA-Public Use
  Company Number: US-TEVA-2017-US-834046

PATIENT
  Age: 63 Year
  Sex: Female
  Weight: 83.5 kg

DRUGS (19)
  1. CRESTOR [Concomitant]
     Active Substance: ROSUVASTATIN CALCIUM
     Dates: start: 2007
  2. LETROZOLE. [Concomitant]
     Active Substance: LETROZOLE
     Dates: start: 20160121, end: 201602
  3. MAGNESIUM OXIDE. [Concomitant]
     Active Substance: MAGNESIUM OXIDE
     Dates: start: 2010
  4. FISH OIL [Concomitant]
     Active Substance: FISH OIL
     Dates: start: 2010
  5. DOCETAXEL ACTAVIS [Suspect]
     Active Substance: DOCETAXEL
     Indication: BREAST CANCER FEMALE
     Dosage: NUMBER OF CYCLE ? 02, FREQUENCY ? EVERY THREE WEEKS
     Dates: start: 20150901, end: 20151013
  6. PACLITAXEL. [Suspect]
     Active Substance: PACLITAXEL
     Indication: BREAST CANCER FEMALE
     Dosage: NUMBER OF CYCLE ? 02, FREQUENCY ? EVERY THREE WEEKS
     Dates: start: 20150901, end: 20151013
  7. ADRIAMYCIN [Suspect]
     Active Substance: DOXORUBICIN HYDROCHLORIDE
     Indication: BREAST CANCER FEMALE
     Dosage: NUMBER OF CYCLE ? 02, FREQUENCY ? EVERY THREE WEEKS
     Dates: start: 20150901, end: 20151013
  8. POTASSIUM CHLORIDE ER [Concomitant]
     Active Substance: POTASSIUM CHLORIDE
     Dates: start: 2015
  9. EXEMESTANE. [Concomitant]
     Active Substance: EXEMESTANE
     Dates: start: 201602, end: 201605
  10. D?3, B12? FLAX SEED OIL [Concomitant]
     Dates: start: 2010
  11. DOCETAXEL ACCORD [Suspect]
     Active Substance: DOCETAXEL
     Indication: BREAST CANCER FEMALE
     Dosage: NUMBER OF CYCLE ? 02, FREQUENCY ? EVERY THREE WEEKS
     Dates: start: 20150901, end: 20151013
  12. TRAZODONE [Concomitant]
     Active Substance: TRAZODONE HYDROCHLORIDE
     Dates: start: 2007
  13. PANTOPRAZOLE SODIUM. [Concomitant]
     Active Substance: PANTOPRAZOLE SODIUM
     Dosage: NUMBER OF CYCLE ? 02, FREQUENCY ? EVERY THREE WEEKS
     Dates: start: 20150901, end: 20151013
  14. ARMIDEX [Concomitant]
     Dates: start: 201510, end: 20160121
  15. WELLBUTRIN [Concomitant]
     Active Substance: BUPROPION HYDROCHLORIDE
     Dates: start: 2011
  16. CYTOXAN [Suspect]
     Active Substance: CYCLOPHOSPHAMIDE
     Indication: BREAST CANCER FEMALE
     Dosage: NUMBER OF CYCLE ? 02, FREQUENCY ? EVERY THREE WEEKS
     Dates: start: 20150901, end: 20151013
  17. DOCETAXEL SANOFI AVENTIS [Suspect]
     Active Substance: DOCETAXEL
     Indication: BREAST CANCER FEMALE
     Dosage: NUMBER OF CYCLE ? 02, FREQUENCY ? EVERY THREE WEEKS
     Dates: start: 20150901, end: 20151013
  18. DIPHENOXYLATE?ATROPINE [Concomitant]
     Active Substance: ATROPINE\DIPHENOXYLATE
     Dates: start: 201502
  19. GABAPENTIN. [Concomitant]
     Active Substance: GABAPENTIN
     Dates: start: 2005

REACTIONS (13)
  - Nausea [Unknown]
  - Nail dystrophy [Unknown]
  - Hair colour changes [Not Recovered/Not Resolved]
  - Alopecia areata [Not Recovered/Not Resolved]
  - Madarosis [Not Recovered/Not Resolved]
  - Seborrhoeic dermatitis [Unknown]
  - Pruritus [Unknown]
  - Onychomycosis [Unknown]
  - Seborrhoeic keratosis [Unknown]
  - Xerosis [Unknown]
  - Hair texture abnormal [Not Recovered/Not Resolved]
  - Bone pain [Unknown]
  - Menopausal symptoms [Unknown]

NARRATIVE: CASE EVENT DATE: 201604
